FAERS Safety Report 5215137-7 (Version None)
Quarter: 2006Q4

REPORT INFORMATION
  Report Type: 
  Country: None (occurrence: None)
  Receive Date: 20061107
  Receipt Date: 20060828
  Transmission Date: 20070319
  Serious: No
  Sender: FDA-Public Use
  Company Number: 200614336BWH

PATIENT
  Sex: Female

DRUGS (1)
  1. LEVITRA [Suspect]
     Indication: LIBIDO DECREASED
     Dosage: ORAL
     Route: 048

REACTIONS (1)
  - NO ADVERSE DRUG EFFECT [None]
